FAERS Safety Report 7036422-2 (Version None)
Quarter: 2010Q4

REPORT INFORMATION
  Report Type: 
  Country: None (occurrence: None)
  Receive Date: 20101010
  Receipt Date: 20101007
  Transmission Date: 20110411
  Serious: Yes (Other)
  Sender: FDA-Public Use
  Company Number: US-BRISTOL-MYERS SQUIBB COMPANY-15323504

PATIENT
  Age: 50 Year
  Sex: Female

DRUGS (1)
  1. ONGLYZA [Suspect]
     Dosage: FOR 2 WEEKS TO A MONTH

REACTIONS (2)
  - LIP SWELLING [None]
  - OEDEMA MOUTH [None]
